FAERS Safety Report 20475255 (Version 1)
Quarter: 2022Q1

REPORT INFORMATION
  Report Type: Spontaneous
  Country: US (occurrence: US)
  Receive Date: 20220215
  Receipt Date: 20220215
  Transmission Date: 20220423
  Serious: Yes (Death, Hospitalization, Other)
  Sender: FDA-Public Use
  Company Number: US-JNJFOC-20220231175

PATIENT

DRUGS (3)
  1. RYBREVANT [Suspect]
     Active Substance: AMIVANTAMAB-VMJW
     Indication: Product used for unknown indication
     Dosage: C1D1
     Route: 065
     Dates: start: 202109
  2. RYBREVANT [Suspect]
     Active Substance: AMIVANTAMAB-VMJW
     Dosage: C1D8
     Route: 065
  3. RYBREVANT [Suspect]
     Active Substance: AMIVANTAMAB-VMJW
     Dosage: ^LOWER DOSE^
     Route: 065
     Dates: start: 202111

REACTIONS (6)
  - Pneumonitis [Fatal]
  - Oxygen saturation decreased [Unknown]
  - Infusion related reaction [Unknown]
  - Fall [Unknown]
  - Loss of consciousness [Unknown]
  - Rash [Unknown]
